FAERS Safety Report 10334515 (Version 1)
Quarter: 2014Q3

REPORT INFORMATION
  Report Type: Spontaneous
  Country: US (occurrence: None)
  Receive Date: 20140721
  Receipt Date: 20140721
  Transmission Date: 20150326
  Serious: No
  Sender: FDA-Public Use
  Company Number: None

PATIENT
  Age: 4 Year
  Sex: Female
  Weight: 18.14 kg

DRUGS (1)
  1. DAYTRANA [Suspect]
     Active Substance: METHYLPHENIDATE
     Indication: ATTENTION DEFICIT/HYPERACTIVITY DISORDER
     Route: 061
     Dates: start: 20140718, end: 20140718

REACTIONS (5)
  - Product quality issue [None]
  - Product physical issue [None]
  - Application site erythema [None]
  - Application site pain [None]
  - Product adhesion issue [None]

NARRATIVE: CASE EVENT DATE: 20140718
